FAERS Safety Report 19745446 (Version 4)
Quarter: 2022Q2

REPORT INFORMATION
  Report Type: Spontaneous
  Country: CA (occurrence: CA)
  Receive Date: 20210825
  Receipt Date: 20220421
  Transmission Date: 20220721
  Serious: Yes (Hospitalization, Other)
  Sender: FDA-Public Use
  Company Number: CA-PFIZER INC-202101064140

PATIENT
  Age: 68 Year
  Sex: Male
  Weight: 82 kg

DRUGS (4)
  1. XELJANZ [Suspect]
     Active Substance: TOFACITINIB CITRATE
     Indication: Colitis ulcerative
     Dosage: 10 MG, 2X/DAY
     Route: 048
     Dates: start: 20210531, end: 20210813
  2. XELJANZ [Suspect]
     Active Substance: TOFACITINIB CITRATE
     Dosage: 10 MG, 2X/DAY
     Route: 048
     Dates: start: 20210531, end: 2022
  3. ENTYVIO [Concomitant]
     Active Substance: VEDOLIZUMAB
     Dosage: 1 DF,EVERY 4 WEEK
  4. JANUMET [Concomitant]
     Active Substance: METFORMIN HYDROCHLORIDE\SITAGLIPTIN PHOSPHATE
     Dosage: 1 DF DOSAGE INFORMATION NOT AVAILABLE
     Route: 065

REACTIONS (13)
  - Cerebrovascular accident [Unknown]
  - Mouth ulceration [Recovering/Resolving]
  - Tongue ulceration [Unknown]
  - Fatigue [Not Recovered/Not Resolved]
  - Gout [Not Recovered/Not Resolved]
  - Muscle spasms [Not Recovered/Not Resolved]
  - Arthralgia [Not Recovered/Not Resolved]
  - Hypoaesthesia [Recovered/Resolved]
  - Visual impairment [Not Recovered/Not Resolved]
  - Pain [Not Recovered/Not Resolved]
  - Insomnia [Not Recovered/Not Resolved]
  - Pain in extremity [Recovering/Resolving]
  - Weight increased [Unknown]

NARRATIVE: CASE EVENT DATE: 20210101
